FAERS Safety Report 16033486 (Version 1)
Quarter: 2019Q1

REPORT INFORMATION
  Report Type: Spontaneous
  Country: US (occurrence: US)
  Receive Date: 20190305
  Receipt Date: 20190305
  Transmission Date: 20190418
  Serious: No
  Sender: FDA-Public Use
  Company Number: US-PRINSTON PHARMACEUTICAL INC.-2018PRN01334

PATIENT
  Age: 66 Year
  Sex: Female
  Weight: 63.04 kg

DRUGS (4)
  1. METFORMIN [Concomitant]
     Active Substance: METFORMIN HYDROCHLORIDE
  2. LEVOTHYROXINE. [Concomitant]
     Active Substance: LEVOTHYROXINE
  3. SIMVASTATIN. [Concomitant]
     Active Substance: SIMVASTATIN
  4. VALSARTAN AND HYDROCHLOROTHIAZIDE [Suspect]
     Active Substance: HYDROCHLOROTHIAZIDE\VALSARTAN
     Indication: HYPERTENSION
     Dosage: 1 TABLETS, 1X/DAY
     Route: 048
     Dates: start: 2014

REACTIONS (3)
  - Abdominal pain upper [Recovering/Resolving]
  - Recalled product administered [Unknown]
  - Irritable bowel syndrome [Recovering/Resolving]
